FAERS Safety Report 7555031-X (Version None)
Quarter: 2011Q2

REPORT INFORMATION
  Report Type: 
  Country: None (occurrence: None)
  Receive Date: 20110617
  Receipt Date: 20110615
  Transmission Date: 20111010
  Serious: Yes (Other)
  Sender: FDA-Public Use
  Company Number: VE-PFIZER INC-2011119410

PATIENT
  Age: 5 Year
  Sex: Male

DRUGS (1)
  1. GENOTROPIN [Suspect]
     Indication: GROWTH HORMONE DEFICIENCY
     Dosage: 5.3 MG, 1X/DAY
     Route: 058
     Dates: start: 20101101, end: 20110501

REACTIONS (2)
  - PNEUMONIA [None]
  - INJECTION SITE PAIN [None]
